FAERS Safety Report 6136718-2 (Version None)
Quarter: 2009Q1

REPORT INFORMATION
  Report Type: 
  Country: None (occurrence: None)
  Receive Date: 20090330
  Receipt Date: 20090320
  Transmission Date: 20090719
  Serious: Yes (Hospitalization)
  Sender: FDA-Public Use
  Company Number: FR-EISAI MEDIAL RESEARCH-E3810-02668-SPO-FR

PATIENT
  Sex: Male

DRUGS (14)
  1. PARIET (RABEPRAZOLE) [Suspect]
     Route: 048
  2. PARIET (RABEPRAZOLE) [Suspect]
     Route: 048
  3. SERETIDE [Concomitant]
  4. QUESTRAN [Concomitant]
  5. ATENOLOL [Concomitant]
  6. ALLOPURINOL [Concomitant]
  7. AMLOR [Concomitant]
  8. HEXAQUINE [Concomitant]
  9. PIASCLEDINE [Concomitant]
  10. PLAVIX [Concomitant]
  11. PERINDOPRIL ERBUMINE [Concomitant]
  12. DUPHALAC [Concomitant]
  13. OMACOR [Concomitant]
  14. ASPEGIC 325 [Concomitant]

REACTIONS (1)
  - PANCREATITIS [None]
